FAERS Safety Report 9143906 (Version 1)
Quarter: 2013Q1

REPORT INFORMATION
  Report Type: Spontaneous
  Country: JP (occurrence: JP)
  Receive Date: 20130306
  Receipt Date: 20130306
  Transmission Date: 20140127
  Serious: Yes (Death)
  Sender: FDA-Public Use
  Company Number: JP-WATSON-2013-03478

PATIENT
  Age: 41 Year
  Sex: Female

DRUGS (2)
  1. PREDNISOLONE (UNKNOWN) [Suspect]
     Indication: DERMATOMYOSITIS
     Dosage: 13 MG, DAILY
     Route: 048
  2. METHYLPREDNISOLONE ACETATE [Suspect]
     Indication: DERMATOMYOSITIS
     Dosage: 10 MG/KG, EVERY TWO WEEKS
     Route: 065

REACTIONS (3)
  - Pneumatosis intestinalis [Fatal]
  - Large intestine perforation [Fatal]
  - Sepsis [Fatal]
